FAERS Safety Report 9983355 (Version 3)
Quarter: 2014Q2

REPORT INFORMATION
  Report Type: Report from Study
  Country: US (occurrence: US)
  Receive Date: 20140307
  Receipt Date: 20140506
  Transmission Date: 20141212
  Serious: Yes (Hospitalization)
  Sender: FDA-Public Use
  Company Number: US-SHIRE-US201400224

PATIENT
  Age: 46 Year
  Sex: Male
  Weight: 96.15 kg

DRUGS (4)
  1. 489 (LISDEXAMFETAMINE DIMESYLATE) [Suspect]
     Indication: MAJOR DEPRESSION
     Dosage: 70 MG, 1X/DAY:QD
     Route: 048
     Dates: start: 20140210, end: 20140211
  2. 489 (LISDEXAMFETAMINE DIMESYLATE) [Suspect]
     Dosage: UNK, UNKNOWN
     Route: 048
     Dates: start: 20130329
  3. ESCITALOPRAM OXALATE [Suspect]
     Indication: DEPRESSION
     Dosage: 20 MG, 1X/DAY:QD
     Route: 048
     Dates: start: 20121119, end: 20140211
  4. ESCITALOPRAM OXALATE [Suspect]
     Dosage: UNK

REACTIONS (1)
  - Suicidal ideation [Recovered/Resolved]
